FAERS Safety Report 16906834 (Version 1)
Quarter: 2019Q4

REPORT INFORMATION
  Report Type: Spontaneous
  Country: GB (occurrence: GB)
  Receive Date: 20191011
  Receipt Date: 20191011
  Transmission Date: 20200122
  Serious: Yes (Other)
  Sender: FDA-Public Use
  Company Number: GB-ADVANZ PHARMA-E2B_00020893

PATIENT

DRUGS (4)
  1. PREDNISOLONE. [Suspect]
     Active Substance: PREDNISOLONE
     Indication: IMMUNOSUPPRESSANT DRUG THERAPY
     Dosage: 5 MG, ONCE DAILY
  2. PREDNISOLONE. [Suspect]
     Active Substance: PREDNISOLONE
     Dosage: RELATIVELY MODEST DOSES OF IMMUNOSUPPRESSION, WEANED
  3. MYCOPHENOLATE MOFETIL. [Suspect]
     Active Substance: MYCOPHENOLATE MOFETIL
     Indication: IMMUNOSUPPRESSANT DRUG THERAPY
     Dosage: 500 MG, BID
     Dates: start: 2014, end: 2015
  4. MYCOPHENOLATE MOFETIL. [Suspect]
     Active Substance: MYCOPHENOLATE MOFETIL
     Dosage: RELATIVELY MODEST DOSES OF IMMUNOSUPPRESSION
     Dates: start: 2015, end: 2015

REACTIONS (3)
  - Post transplant lymphoproliferative disorder [Recovering/Resolving]
  - Cytomegalovirus infection [Unknown]
  - Skin bacterial infection [Recovering/Resolving]

NARRATIVE: CASE EVENT DATE: 201502
